FAERS Safety Report 25086820 (Version 2)
Quarter: 2025Q4

REPORT INFORMATION
  Report Type: Report from Study
  Country: US (occurrence: US)
  Receive Date: 20250318
  Receipt Date: 20251016
  Transmission Date: 20260117
  Serious: No
  Sender: SANDOZ
  Company Number: US-SANDOZ-SDZ2025US015513

PATIENT

DRUGS (2)
  1. OMNITROPE [Suspect]
     Active Substance: SOMATROPIN
     Indication: Neuralgic amyotrophy
     Dosage: 1 MG, QD (10/1.5MG/ML)
     Route: 058
     Dates: start: 20250302
  2. OMNITROPE [Suspect]
     Active Substance: SOMATROPIN
     Indication: Neuralgic amyotrophy
     Dosage: 1 MG, QD (10/1.5MG/ML)
     Route: 058
     Dates: start: 20250302

REACTIONS (2)
  - Wrong technique in device usage process [Unknown]
  - Device leakage [Unknown]
